FAERS Safety Report 8177853-7 (Version None)
Quarter: 2012Q1

REPORT INFORMATION
  Report Type: 
  Country: None (occurrence: None)
  Receive Date: 20120301
  Receipt Date: 20110520
  Transmission Date: 20120608
  Serious: Yes (Other)
  Sender: FDA-Public Use
  Company Number: FR-ROCHE-1044022

PATIENT

DRUGS (3)
  1. AVASTIN [Suspect]
     Indication: BREAST CANCER METASTATIC
     Route: 042
  2. AMG 386 (ANGIOPOIETIN NEUTRALIZING PEPTIBODY) [Suspect]
     Indication: BREAST CANCER METASTATIC
     Route: 042
  3. PACLITAXEL [Suspect]
     Indication: BREAST CANCER METASTATIC
     Route: 042

REACTIONS (4)
  - NEUROPATHY PERIPHERAL [None]
  - NEUTROPENIA [None]
  - HYPERTENSION [None]
  - OEDEMA PERIPHERAL [None]
